FAERS Safety Report 16017370 (Version 1)
Quarter: 2019Q1

REPORT INFORMATION
  Report Type: Spontaneous
  Country: JP (occurrence: JP)
  Receive Date: 20190228
  Receipt Date: 20190228
  Transmission Date: 20190418
  Serious: Yes (Disabling)
  Sender: FDA-Public Use
  Company Number: JP-MYLANLABS-2019M1014348

PATIENT
  Age: 8 Decade
  Sex: Female

DRUGS (1)
  1. TACROLIMUS CAPSULE? 0.5MG ?PFIZER? [Suspect]
     Active Substance: TACROLIMUS
     Indication: PRODUCT USED FOR UNKNOWN INDICATION
     Route: 048

REACTIONS (1)
  - Cardiomyopathy [Unknown]
